FAERS Safety Report 17204401 (Version 1)
Quarter: 2019Q4

REPORT INFORMATION
  Report Type: Spontaneous
  Country: CH (occurrence: CH)
  Receive Date: 20191226
  Receipt Date: 20191226
  Transmission Date: 20200122
  Serious: Yes (Hospitalization, Other)
  Sender: FDA-Public Use
  Company Number: CH-PFIZER INC-2019554133

PATIENT
  Age: 81 Year
  Sex: Male

DRUGS (17)
  1. OXYNORM [Suspect]
     Active Substance: OXYCODONE HYDROCHLORIDE
     Indication: RESTLESS LEGS SYNDROME
     Dosage: 5 MG, AS NEEDED (MAXIMUM 5 CAPSULES IN 24 HOURS)
     Route: 048
     Dates: end: 20191021
  2. CORDARONE [Concomitant]
     Active Substance: AMIODARONE HYDROCHLORIDE
     Dosage: 200 MG, UNK (ON MON, TUE, WED, THU, FRI)
     Route: 048
  3. EUTHYROX [Concomitant]
     Active Substance: LEVOTHYROXINE SODIUM
     Dosage: 75 MG, UNK
     Route: 048
  4. TRESIBA [Concomitant]
     Active Substance: INSULIN DEGLUDEC
     Dosage: 1 DF, UNK (4 UNITS IN THE EVENING OR ADAPTED TO BLOOD SUGAR)
     Route: 058
  5. TOREM [TORASEMIDE] [Concomitant]
     Active Substance: TORSEMIDE
     Dosage: 20 MG, UNK
     Route: 048
     Dates: start: 201910
  6. DAFALGAN [Concomitant]
     Active Substance: ACETAMINOPHEN
     Dosage: 500 MG, UNK
     Route: 048
  7. MOVICOL [Concomitant]
     Active Substance: POLYETHYLENE GLYCOL 3350\POTASSIUM CHLORIDE\SODIUM BICARBONATE\SODIUM CHLORIDE
     Dosage: 1 DF, UNK
     Route: 048
  8. PREGABALIN PFIZER [Suspect]
     Active Substance: PREGABALIN
     Indication: RESTLESS LEGS SYNDROME
     Dosage: 50 MG, UNK (1 HOUR BEFORE SLEEPING)
     Route: 048
     Dates: start: 20191021, end: 20191024
  9. PREGABALIN PFIZER [Suspect]
     Active Substance: PREGABALIN
     Dosage: 50 MG, UNK (1 HOUR BEFORE SLEEPING)
     Route: 048
     Dates: start: 20191025
  10. TOREM [TORASEMIDE] [Concomitant]
     Active Substance: TORSEMIDE
     Dosage: 50 MG, UNK
     Route: 048
     Dates: end: 201910
  11. NOVORAPID [Concomitant]
     Active Substance: INSULIN ASPART
     Dosage: 1 DF, AS NEEDED (4 UNITS IN THE EVENING OR ADAPTED TO BLOOD SUGAR)
     Route: 058
  12. NEUPRO [Concomitant]
     Active Substance: ROTIGOTINE
     Dosage: 1 DF, UNK
     Route: 062
  13. NEURONTIN [Suspect]
     Active Substance: GABAPENTIN
     Indication: RESTLESS LEGS SYNDROME
     Dosage: 300 MG, 1X/DAY
     Route: 048
  14. NEURONTIN [Suspect]
     Active Substance: GABAPENTIN
     Dosage: 100 MG, 2X/DAY
     Route: 048
     Dates: start: 20191025
  15. TARGIN [Suspect]
     Active Substance: NALOXONE HYDROCHLORIDE\OXYCODONE HYDROCHLORIDE
     Indication: RESTLESS LEGS SYNDROME
     Dosage: UNK (10/5 MG )
     Route: 048
     Dates: end: 20191021
  16. MARCOUMAR [Concomitant]
     Active Substance: PHENPROCOUMON
     Dosage: 1 DF, UNK (3 MG ACCORDING TO INR)
     Route: 048
  17. LYMAN [ALLANTOIN;DEXPANTHENOL;HEPARIN SODIUM] [Concomitant]
     Dosage: 1 DF, AS NEEDED
     Route: 061

REACTIONS (6)
  - Product use in unapproved indication [Unknown]
  - Somnolence [Recovered/Resolved]
  - Renal impairment [Unknown]
  - Unresponsive to stimuli [Unknown]
  - Disturbance in attention [Recovered/Resolved]
  - Off label use [Unknown]

NARRATIVE: CASE EVENT DATE: 20191021
